FAERS Safety Report 10053040 (Version 1)
Quarter: 2014Q2

REPORT INFORMATION
  Report Type: Spontaneous
  Country: US (occurrence: US)
  Receive Date: 20140402
  Receipt Date: 20140402
  Transmission Date: 20141212
  Serious: Yes (Other)
  Sender: FDA-Public Use
  Company Number: US-PFIZER INC-2014092232

PATIENT
  Sex: Female

DRUGS (1)
  1. ADVIL [Suspect]
     Indication: PAIN
     Dosage: UNK

REACTIONS (3)
  - Overdose [Unknown]
  - Gastric haemorrhage [Unknown]
  - Rectal haemorrhage [Unknown]
